FAERS Safety Report 6620624-0 (Version None)
Quarter: 2010Q1

REPORT INFORMATION
  Report Type: 
  Country: None (occurrence: None)
  Receive Date: 20100309
  Receipt Date: 20100225
  Transmission Date: 20100710
  Serious: Yes (Other)
  Sender: FDA-Public Use
  Company Number: JP-PFIZER INC-2010010291

PATIENT
  Age: 39 Year
  Sex: Male

DRUGS (4)
  1. ZOLOFT [Suspect]
     Dosage: 25 MG/DAY
     Route: 048
     Dates: start: 20091126, end: 20091209
  2. ZOLOFT [Suspect]
     Dosage: 50 MG/DAY
     Route: 048
     Dates: start: 20091210, end: 20100120
  3. DOGMATYL [Concomitant]
     Dosage: UNK
     Route: 048
     Dates: start: 20091210
  4. DEPAS [Concomitant]
     Dosage: UNK
     Route: 048
     Dates: start: 20091210

REACTIONS (4)
  - ECZEMA ASTEATOTIC [None]
  - EYELID OEDEMA [None]
  - HYPOAESTHESIA ORAL [None]
  - PRURITUS [None]
